FAERS Safety Report 9245508 (Version 2)
Quarter: 2013Q2

REPORT INFORMATION
  Report Type: Report from Study
  Country: GB (occurrence: GB)
  Receive Date: 20130422
  Receipt Date: 20130423
  Transmission Date: 20140414
  Serious: Yes (Death)
  Sender: FDA-Public Use
  Company Number: GB-ROCHE-1216972

PATIENT
  Age: 83 Year
  Sex: Female

DRUGS (2)
  1. RANIBIZUMAB [Suspect]
     Indication: PRODUCT USED FOR UNKNOWN INDICATION
     Route: 050
     Dates: start: 20101207
  2. RANIBIZUMAB [Suspect]
     Dosage: LAST DOSE PRIOR TO SAE ON 14/MAY/2012
     Route: 050
     Dates: start: 20120514

REACTIONS (1)
  - Chronic obstructive pulmonary disease [Fatal]
